FAERS Safety Report 18719915 (Version 2)
Quarter: 2021Q1

REPORT INFORMATION
  Report Type: Spontaneous
  Country: BR (occurrence: BR)
  Receive Date: 20210108
  Receipt Date: 20210210
  Transmission Date: 20210419
  Serious: Yes (Other)
  Sender: FDA-Public Use
  Company Number: BR-GE HEALTHCARE LIFE SCIENCES-2021CSU000090

PATIENT

DRUGS (5)
  1. OMNISCAN [Suspect]
     Active Substance: GADODIAMIDE
     Indication: ARTHRALGIA
  2. OMNISCAN [Suspect]
     Active Substance: GADODIAMIDE
     Indication: BACK PAIN
  3. OMNISCAN [Suspect]
     Active Substance: GADODIAMIDE
     Indication: MAGNETIC RESONANCE IMAGING SPINAL
     Dosage: 10 ML, SINGLE
     Route: 065
     Dates: start: 20201111, end: 20201111
  4. GLIFAGE [Concomitant]
     Active Substance: METFORMIN HYDROCHLORIDE
     Dosage: 750 MG
  5. DIOSMIN [Concomitant]
     Active Substance: DIOSMIN

REACTIONS (3)
  - Cough [Recovered/Resolved]
  - Musculoskeletal discomfort [Recovered/Resolved]
  - Laryngeal oedema [Recovered/Resolved]

NARRATIVE: CASE EVENT DATE: 20201111
